FAERS Safety Report 9218519 (Version 1)
Quarter: 2013Q2

REPORT INFORMATION
  Report Type: Spontaneous
  Country: US (occurrence: None)
  Receive Date: 20130405
  Receipt Date: 20130405
  Transmission Date: 20140414
  Serious: Yes (Hospitalization)
  Sender: FDA-Public Use
  Company Number: None

PATIENT
  Age: 76 Year
  Sex: Male
  Weight: 73.4 kg

DRUGS (1)
  1. METOPROLOL [Suspect]
     Dosage: MG
     Route: 048
     Dates: start: 20120904

REACTIONS (2)
  - Syncope [None]
  - Dizziness [None]
